FAERS Safety Report 7653560-1 (Version None)
Quarter: 2011Q3

REPORT INFORMATION
  Report Type: 
  Country: None (occurrence: None)
  Receive Date: 20110802
  Receipt Date: 20110802
  Transmission Date: 20111222
  Serious: Yes (Hospitalization)
  Sender: FDA-Public Use
  Company Number: None

PATIENT
  Sex: Male
  Weight: 81.6475 kg

DRUGS (3)
  1. ATENOLOL [Suspect]
     Dosage: 50MG 1X
     Dates: start: 20110623
  2. ATENOLOL [Suspect]
     Dosage: 50MG 1X
     Dates: start: 20110624
  3. ATENOLOL [Suspect]
     Dosage: 50MG 1X
     Dates: start: 20110625

REACTIONS (3)
  - PRURITUS [None]
  - RASH [None]
  - SKIN WARM [None]
